FAERS Safety Report 4414207-0 (Version None)
Quarter: 2004Q3

REPORT INFORMATION
  Report Type: 
  Country: None (occurrence: None)
  Receive Date: 20040729
  Receipt Date: 20040715
  Transmission Date: 20050211
  Serious: Yes (Life-Threatening, Hospitalization)
  Sender: FDA-Public Use
  Company Number: 2004-DE-03955PO

PATIENT
  Age: 61 Year
  Sex: Female

DRUGS (5)
  1. VIRAMUNE [Suspect]
     Indication: HIV INFECTION
     Dosage: 400 MG (200 MG, 2 IN 1 D) PO
     Route: 048
     Dates: start: 20040525, end: 20040616
  2. PANTOPRAZOLE (PANTOPRAZOLE) [Concomitant]
  3. ZIDOVUDINE [Concomitant]
  4. LAMIVUDINE (LAMIVUDINE) [Concomitant]
  5. INDINAVIR SULPHATE [Concomitant]

REACTIONS (3)
  - EXANTHEM [None]
  - HEPATITIS CHOLESTATIC [None]
  - PYREXIA [None]
